FAERS Safety Report 17926560 (Version 35)
Quarter: 2022Q2

REPORT INFORMATION
  Report Type: Report from Study
  Country: BR (occurrence: BR)
  Receive Date: 20200622
  Receipt Date: 20220418
  Transmission Date: 20220721
  Serious: Yes (Life-Threatening, Hospitalization, Other)
  Sender: FDA-Public Use
  Company Number: NVSC2019BR072462

PATIENT
  Sex: Female
  Weight: 56 kg

DRUGS (43)
  1. KISQALI [Suspect]
     Active Substance: RIBOCICLIB
     Indication: Breast cancer metastatic
     Dosage: UNK
     Route: 065
  2. KISQALI [Suspect]
     Active Substance: RIBOCICLIB
     Indication: Metastases to bone
     Dosage: 200 MG, QD
     Route: 065
  3. KISQALI [Suspect]
     Active Substance: RIBOCICLIB
     Indication: Breast neoplasm
     Dosage: 400 MG, QD
     Route: 065
  4. KISQALI [Suspect]
     Active Substance: RIBOCICLIB
     Dosage: 600 MG, CYCLIC (CYCLE OF 21 DAYS) (3 TABLETS, STOPPED AFTER 1 MONTHS AND A HALF FROM THE START DATE)
     Route: 065
     Dates: start: 20191106, end: 201912
  5. KISQALI [Suspect]
     Active Substance: RIBOCICLIB
     Dosage: UNK
     Route: 065
     Dates: start: 20191106
  6. KISQALI [Suspect]
     Active Substance: RIBOCICLIB
     Dosage: 3 DF
     Route: 065
  7. KISQALI [Suspect]
     Active Substance: RIBOCICLIB
     Dosage: 200 MG, QD
     Route: 065
  8. KISQALI [Suspect]
     Active Substance: RIBOCICLIB
     Dosage: 2 DF, QD
     Route: 048
     Dates: start: 20191106
  9. KISQALI [Suspect]
     Active Substance: RIBOCICLIB
     Dosage: 3 DF, Q3W, (USE FOR EVERY 21 DAYS)
     Route: 065
     Dates: start: 201911
  10. KISQALI [Suspect]
     Active Substance: RIBOCICLIB
     Dosage: 2 DF, Q3W, (USE FOR EVERY 21 DAYS)
     Route: 065
     Dates: start: 201911
  11. KISQALI [Suspect]
     Active Substance: RIBOCICLIB
     Dosage: UNK, Q3W, (USE FOR EVERY 21 DAYS)
     Route: 065
  12. KISQALI [Suspect]
     Active Substance: RIBOCICLIB
     Dosage: 400 MG
     Route: 065
  13. KISQALI [Suspect]
     Active Substance: RIBOCICLIB
     Dosage: 1 DF, CYCLIC (1 TABLET, STOPPED AFTER 3 MONTHS AND A HALF FROM THE START DATE)
     Route: 065
  14. KISQALI [Suspect]
     Active Substance: RIBOCICLIB
     Dosage: 3 TABLETS
     Route: 065
     Dates: start: 20191106, end: 202112
  15. KISQALI [Suspect]
     Active Substance: RIBOCICLIB
     Dosage: 3 DF, QD (3 TABLETS)
     Route: 065
     Dates: start: 201911, end: 202103
  16. KISQALI [Suspect]
     Active Substance: RIBOCICLIB
     Dosage: 1 DF (CYCLE OF 21 DAYS)
     Route: 065
  17. KISQALI [Suspect]
     Active Substance: RIBOCICLIB
     Dosage: 2 DF, CYCLIC (CYCLE OF 21 DAYS) (2 TABLETS)
     Route: 065
     Dates: start: 20210418
  18. KISQALI [Suspect]
     Active Substance: RIBOCICLIB
     Dosage: 2 DF, CYCLIC (CYCLE OF 21 DAYS) (2 TABLETS)
     Route: 065
  19. KISQALI [Suspect]
     Active Substance: RIBOCICLIB
     Dosage: UNK
     Route: 065
  20. KISQALI [Suspect]
     Active Substance: RIBOCICLIB
     Dosage: 2 DF, Q3W (21 DAYS AND 7 DAYS BREAK)
     Route: 065
  21. KISQALI [Suspect]
     Active Substance: RIBOCICLIB
     Dosage: 3 DOSAGE FORM, QD
     Route: 065
     Dates: start: 20191109
  22. KISQALI [Suspect]
     Active Substance: RIBOCICLIB
     Dosage: 1 DOSAGE FORM, QD
     Route: 065
  23. KISQALI [Suspect]
     Active Substance: RIBOCICLIB
     Dosage: 6 DOSAGE FORM, QD
     Route: 065
     Dates: end: 202001
  24. KISQALI [Suspect]
     Active Substance: RIBOCICLIB
     Dosage: 2 DOSAGE FORM, QD
     Route: 065
     Dates: end: 20211213
  25. KISQALI [Suspect]
     Active Substance: RIBOCICLIB
     Dosage: 3 DOSAGE FORM, QD
     Route: 065
     Dates: start: 20211213
  26. KISQALI [Suspect]
     Active Substance: RIBOCICLIB
     Dosage: 600 ML, QD
     Route: 048
     Dates: start: 20191206, end: 20220103
  27. KISQALI [Suspect]
     Active Substance: RIBOCICLIB
     Dosage: 3 DOSAGE FORM
     Route: 065
     Dates: start: 20220103
  28. KISQALI [Suspect]
     Active Substance: RIBOCICLIB
     Dosage: 2 DOSAGE FORM (2 TABLET)
     Route: 065
     Dates: start: 20220127
  29. KISQALI [Suspect]
     Active Substance: RIBOCICLIB
     Dosage: (START: AROUND END OF JAN 2022), 2 TABLETS
     Route: 065
     Dates: start: 202201
  30. KISQALI [Suspect]
     Active Substance: RIBOCICLIB
     Dosage: 600 MG, QD (600ML/DAY)
     Route: 048
     Dates: start: 20211115, end: 20220207
  31. KISQALI [Suspect]
     Active Substance: RIBOCICLIB
     Dosage: 400 MG, QD
     Route: 065
     Dates: start: 20191106
  32. KISQALI [Suspect]
     Active Substance: RIBOCICLIB
     Dosage: 1  TABLET (STOPPED AROUND 2 OR 3 MONTHS)
     Route: 065
  33. ANASTROZOLE [Suspect]
     Active Substance: ANASTROZOLE
     Indication: Breast cancer metastatic
     Dosage: UNK
     Route: 065
  34. ONDANSETRON [Suspect]
     Active Substance: ONDANSETRON
     Indication: Product used for unknown indication
     Dosage: UNK
     Route: 065
  35. FULVESTRANT [Suspect]
     Active Substance: FULVESTRANT
     Indication: Metastases to bone
     Dosage: UNK
     Route: 065
  36. FULVESTRANT [Suspect]
     Active Substance: FULVESTRANT
     Dosage: UNK
     Route: 065
  37. FULVESTRANT [Suspect]
     Active Substance: FULVESTRANT
     Dosage: UNK, 28D (EVERY 28 DAYS)
     Route: 030
     Dates: start: 201907, end: 202010
  38. FULVESTRANT [Suspect]
     Active Substance: FULVESTRANT
     Dosage: UNK, 28D (EVERY 28 DAYS)
     Route: 065
     Dates: start: 20220127
  39. LETROZOLE [Concomitant]
     Active Substance: LETROZOLE
     Indication: Breast cancer metastatic
     Dosage: UNK
     Route: 065
     Dates: start: 2017
  40. LETROZOLE [Concomitant]
     Active Substance: LETROZOLE
     Indication: Metastases to bone
     Dosage: UNK, QD
     Route: 048
     Dates: start: 202012, end: 202110
  41. DENOSUMAB [Concomitant]
     Active Substance: DENOSUMAB
     Indication: Bone disorder
     Dosage: UNK
     Route: 065
  42. FASLODEX [Concomitant]
     Active Substance: FULVESTRANT
     Indication: Product used for unknown indication
     Dosage: UNK
     Route: 065
  43. RIVOTRIL [Concomitant]
     Active Substance: CLONAZEPAM
     Indication: Insomnia
     Dosage: 0.5 ML (BY NIGHT)
     Route: 048
     Dates: start: 201905

REACTIONS (98)
  - Urticaria [Recovered/Resolved]
  - Malaise [Not Recovered/Not Resolved]
  - Feeding disorder [Unknown]
  - Pruritus [Recovering/Resolving]
  - Nausea [Recovering/Resolving]
  - Tongue discomfort [Not Recovered/Not Resolved]
  - Tongue discolouration [Recovered/Resolved]
  - Oedema [Recovered/Resolved]
  - Skin plaque [Recovered/Resolved]
  - Glossodynia [Not Recovered/Not Resolved]
  - Plicated tongue [Recovered/Resolved]
  - Oropharyngeal pain [Unknown]
  - Pruritus [Recovered/Resolved]
  - Tumour marker increased [Unknown]
  - Dry mouth [Recovering/Resolving]
  - Metastasis [Unknown]
  - Thrombosis [Unknown]
  - Bone loss [Unknown]
  - Osteoporosis [Unknown]
  - Immunodeficiency [Unknown]
  - Metastases to bone [Unknown]
  - Metastases to lung [Unknown]
  - Metastases to liver [Unknown]
  - Dry skin [Recovering/Resolving]
  - Weight decreased [Recovered/Resolved]
  - Wound [Recovered/Resolved]
  - Tongue disorder [Recovered/Resolved]
  - Oral contusion [Recovered/Resolved]
  - Skin disorder [Recovered/Resolved]
  - Tongue injury [Recovered/Resolved]
  - Tongue injury [Recovered/Resolved]
  - Pain of skin [Recovered/Resolved]
  - Sensitive skin [Unknown]
  - Tongue erythema [Recovered/Resolved]
  - Skin irritation [Recovered/Resolved]
  - Swelling [Recovered/Resolved]
  - Glossodynia [Recovered/Resolved]
  - Glossitis [Recovered/Resolved]
  - Feeding disorder [Recovered/Resolved]
  - Tongue disorder [Recovering/Resolving]
  - Feeding disorder [Recovered/Resolved]
  - Tongue injury [Recovered/Resolved]
  - Glossodynia [Recovered/Resolved]
  - Swelling [Recovered/Resolved]
  - Neck pain [Recovered/Resolved]
  - Hypersensitivity [Recovered/Resolved]
  - Erythema [Recovered/Resolved]
  - Treatment failure [Unknown]
  - Drug ineffective [Not Recovered/Not Resolved]
  - Memory impairment [Unknown]
  - Discomfort [Not Recovered/Not Resolved]
  - Feeling abnormal [Unknown]
  - Spinal pain [Recovered/Resolved]
  - Pain [Unknown]
  - Decreased activity [Unknown]
  - Pain of skin [Unknown]
  - Adverse drug reaction [Unknown]
  - Hair colour changes [Not Recovered/Not Resolved]
  - Tongue injury [Recovering/Resolving]
  - Eating disorder [Unknown]
  - Application site pain [Unknown]
  - Back pain [Unknown]
  - Headache [Recovered/Resolved]
  - Alopecia [Unknown]
  - Rash macular [Recovered/Resolved]
  - Fatigue [Not Recovered/Not Resolved]
  - Decreased appetite [Recovering/Resolving]
  - Liver disorder [Not Recovered/Not Resolved]
  - Mass [Unknown]
  - Pain in extremity [Not Recovered/Not Resolved]
  - Tachycardia [Recovered/Resolved]
  - Rib fracture [Not Recovered/Not Resolved]
  - Rib fracture [Recovered/Resolved]
  - Oral contusion [Recovering/Resolving]
  - Skin disorder [Recovered/Resolved]
  - Arthralgia [Not Recovered/Not Resolved]
  - Spinal pain [Not Recovered/Not Resolved]
  - Myalgia [Not Recovered/Not Resolved]
  - COVID-19 [Recovered/Resolved]
  - Nausea [Recovered/Resolved]
  - Abdominal pain [Recovered/Resolved]
  - Asthenia [Not Recovered/Not Resolved]
  - Fatigue [Recovered/Resolved]
  - Pyrexia [Recovering/Resolving]
  - Influenza [Recovering/Resolving]
  - Cough [Not Recovered/Not Resolved]
  - Product dose omission issue [Unknown]
  - Product use in unapproved indication [Unknown]
  - Nausea [Recovered/Resolved]
  - Dyspepsia [Recovered/Resolved]
  - Gastrooesophageal reflux disease [Recovered/Resolved]
  - Vomiting [Recovered/Resolved]
  - Weight decreased [Recovered/Resolved]
  - Urticaria [Recovered/Resolved]
  - Vomiting [Recovered/Resolved]
  - Carbohydrate antigen 125 increased [Unknown]
  - Yellow skin [Not Recovered/Not Resolved]
  - Sleep disorder [Not Recovered/Not Resolved]

NARRATIVE: CASE EVENT DATE: 20170101
